FAERS Safety Report 15567881 (Version 1)
Quarter: 2018Q4

REPORT INFORMATION
  Report Type: Spontaneous
  Country: DE (occurrence: DE)
  Receive Date: 20181030
  Receipt Date: 20181030
  Transmission Date: 20190205
  Serious: Yes (Life-Threatening, Hospitalization)
  Sender: FDA-Public Use
  Company Number: DE-EXELIXIS-CABO-18016448

PATIENT
  Age: 78 Year
  Sex: Male
  Weight: 75 kg

DRUGS (10)
  1. OXYCODONE [Concomitant]
     Active Substance: OXYCODONE
  2. ALOXI [Concomitant]
     Active Substance: PALONOSETRON HYDROCHLORIDE
  3. PREDNISOLONE. [Concomitant]
     Active Substance: PREDNISOLONE
  4. CABOMETYX [Suspect]
     Active Substance: CABOZANTINIB S-MALATE
     Indication: RENAL CELL CARCINOMA
     Dosage: 60 MG, QD
     Route: 048
     Dates: start: 20171213, end: 20180322
  5. ENALAPRIL [Concomitant]
     Active Substance: ENALAPRIL
  6. PANTOPRAZOL [Concomitant]
     Active Substance: PANTOPRAZOLE SODIUM
  7. L-THYROXIN [Concomitant]
     Active Substance: LEVOTHYROXINE SODIUM
  8. LERCANIDIPINE [Concomitant]
     Active Substance: LERCANIDIPINE
  9. ATORVASTATIN [Concomitant]
     Active Substance: ATORVASTATIN
  10. NOVALGIN (METAMIZOLE SODIUM) [Concomitant]
     Active Substance: METAMIZOLE SODIUM

REACTIONS (8)
  - Deep vein thrombosis [Recovered/Resolved with Sequelae]
  - Pleural effusion [Unknown]
  - Emphysema [Unknown]
  - Left ventricular hypertrophy [Unknown]
  - Pulmonary embolism [Recovered/Resolved with Sequelae]
  - Asthenia [Unknown]
  - Right ventricular dysfunction [Unknown]
  - Pneumonia [Unknown]

NARRATIVE: CASE EVENT DATE: 20180322
